FAERS Safety Report 11472474 (Version 3)
Quarter: 2015Q3

REPORT INFORMATION
  Report Type: Spontaneous
  Country: FR (occurrence: FR)
  Receive Date: 20150908
  Receipt Date: 20150922
  Transmission Date: 20151125
  Serious: Yes (Life-Threatening, Hospitalization)
  Sender: FDA-Public Use
  Company Number: FR-SA-2015SA133649

PATIENT
  Age: 80 Year
  Sex: Male

DRUGS (7)
  1. NEBIVOLOL. [Concomitant]
     Active Substance: NEBIVOLOL
  2. PLAVIX [Suspect]
     Active Substance: CLOPIDOGREL BISULFATE
     Route: 048
     Dates: end: 20150411
  3. PAROXETINE [Concomitant]
     Active Substance: PAROXETINE\PAROXETINE HYDROCHLORIDE
  4. PREVISCAN [Interacting]
     Active Substance: FLUINDIONE
     Dosage: FORM: DIVISIBLE
     Route: 048
     Dates: end: 20150411
  5. FUROSEMIDE. [Concomitant]
     Active Substance: FUROSEMIDE
  6. ATORVASTATIN [Concomitant]
     Active Substance: ATORVASTATIN
  7. REPAGLINIDE. [Concomitant]
     Active Substance: REPAGLINIDE

REACTIONS (3)
  - Drug interaction [Unknown]
  - Splenic haematoma [Recovered/Resolved with Sequelae]
  - Shock haemorrhagic [Recovered/Resolved]

NARRATIVE: CASE EVENT DATE: 20150411
